FAERS Safety Report 4865883-X (Version None)
Quarter: 2005Q4

REPORT INFORMATION
  Report Type: 
  Country: None (occurrence: None)
  Receive Date: 20051223
  Receipt Date: 20051219
  Transmission Date: 20060501
  Serious: Yes (Life-Threatening, Hospitalization)
  Sender: FDA-Public Use
  Company Number: PHRM2005FR03302

PATIENT
  Age: 10 Year
  Sex: Male

DRUGS (3)
  1. NEORAL [Suspect]
     Indication: BONE MARROW TRANSPLANT
     Dosage: 50 MG, BID
     Route: 048
     Dates: start: 20050831, end: 20051031
  2. ZELITREX [Concomitant]
     Dosage: 500 MG, BID
     Route: 048
  3. SPORANOX [Concomitant]
     Dosage: 300 MG/DAY
     Route: 048

REACTIONS (8)
  - COMA [None]
  - CONVULSION [None]
  - DYSKINESIA [None]
  - FACIAL PALSY [None]
  - MOTOR DYSFUNCTION [None]
  - MYDRIASIS [None]
  - NEUROTOXICITY [None]
  - PYREXIA [None]
